FAERS Safety Report 7138544 (Version 6)
Quarter: 2012Q4

REPORT INFORMATION
  Report Type: 
  Country: US (occurrence: US)
  Receive Date: 20091002
  Receipt Date: 20120918
  Transmission Date: 20130627
  Serious: Yes (Other)
  Sender: FDA-Public Use
  Company Number: US-BAYER-200934367NA

PATIENT
  Age: 74 Year
  Sex: Female
  Weight: 92.7 kg

DRUGS (12)
  1. TRASYLOL [Suspect]
     Indication: PRODUCT USED FOR UNKNOWN INDICATION
  2. HEPARIN [Concomitant]
     Indication: PRODUCT USED FOR UNKNOWN INDICATION
     Dosage: 10,000IU + 10,000IU + 500u
     Dates: start: 20050531
  3. PROTAMINE [Concomitant]
     Dosage: UNK
     Dates: start: 20050531
  4. LASIX [FUROSEMIDE] [Concomitant]
     Dosage: UNK
     Dates: start: 20050531
  5. PAVULON [Concomitant]
     Indication: PRODUCT USED FOR UNKNOWN INDICATION
     Dosage: 10 mg, UNK
     Dates: start: 20050531
  6. INSULIN [INSULIN HUMAN] [Concomitant]
     Indication: PRODUCT USED FOR UNKNOWN INDICATION
     Dosage: 20 u, UNK
     Dates: start: 20050531
  7. LIDOCAINE [Concomitant]
     Indication: PRODUCT USED FOR UNKNOWN INDICATION
     Dosage: 100mg + 100mg
     Dates: start: 20050531
  8. ZINACEF [Concomitant]
     Dosage: UNK
     Dates: start: 20050531
  9. SODIUM BICARBONATE [Concomitant]
     Indication: PRODUCT USED FOR UNKNOWN INDICATION
     Dosage: 50 mEq, UNK
  10. CALCIUM CHLORIDE [Concomitant]
     Indication: PRODUCT USED FOR UNKNOWN INDICATION
     Dosage: 500 mg, UNK
  11. LASIX [Concomitant]
     Indication: PRODUCT USED FOR UNKNOWN INDICATION
     Dosage: 20 mg, UNK
  12. MAGNESIUM SULFATE [Concomitant]
     Indication: PRODUCT USED FOR UNKNOWN INDICATION
     Dosage: 2.5 g, UNK

REACTIONS (13)
  - Multi-organ failure [Unknown]
  - Renal failure [None]
  - Renal injury [Unknown]
  - Renal failure [Unknown]
  - Injury [Unknown]
  - Anxiety [Unknown]
  - Emotional distress [Unknown]
  - Fear [Unknown]
  - Pain [Unknown]
  - Unevaluable event [Unknown]
  - Depression [Unknown]
  - Anhedonia [Unknown]
  - Nervousness [Unknown]
